FAERS Safety Report 23247561 (Version 2)
Quarter: 2023Q4

REPORT INFORMATION
  Report Type: Spontaneous
  Country: US (occurrence: US)
  Receive Date: 20231130
  Receipt Date: 20231218
  Transmission Date: 20240110
  Serious: No
  Sender: FDA-Public Use
  Company Number: US-SA-SAC20231122000238

PATIENT
  Age: 4 Year
  Sex: Female
  Weight: 21.3 kg

DRUGS (2)
  1. DUPIXENT [Suspect]
     Active Substance: DUPILUMAB
     Indication: Dermatitis atopic
     Dosage: 600 MG, 1X
     Route: 058
  2. DUPIXENT [Suspect]
     Active Substance: DUPILUMAB
     Dosage: 300 MG, Q4W
     Route: 058

REACTIONS (7)
  - Dry skin [Unknown]
  - Eye swelling [Unknown]
  - Pruritus [Unknown]
  - Dry eye [Unknown]
  - Rash [Unknown]
  - Therapeutic response shortened [Unknown]
  - Off label use [Unknown]
